FAERS Safety Report 6816933-2 (Version None)
Quarter: 2010Q3

REPORT INFORMATION
  Report Type: 
  Country: None (occurrence: None)
  Receive Date: 20100706
  Receipt Date: 20100629
  Transmission Date: 20110219
  Serious: Yes (Death, Hospitalization)
  Sender: FDA-Public Use
  Company Number: FR-BRISTOL-MYERS SQUIBB COMPANY-15173362

PATIENT
  Age: 48 Year
  Sex: Female

DRUGS (7)
  1. VIDEX [Suspect]
     Indication: HIV INFECTION
     Route: 048
  2. REYATAZ [Suspect]
     Indication: HIV INFECTION
     Dates: start: 20070101
  3. NORVIR [Suspect]
     Indication: HIV INFECTION
     Dates: start: 20070101
  4. VIREAD [Suspect]
     Indication: HIV INFECTION
  5. REBETOL [Suspect]
     Indication: HEPATITIS C
     Dates: start: 20090930
  6. VIRAFERONPEG [Suspect]
     Indication: HEPATITIS C
     Dates: start: 20091107
  7. BACTRIM [Concomitant]

REACTIONS (22)
  - ABDOMINAL PAIN [None]
  - ANURIA [None]
  - ASTHENIA [None]
  - BLOOD LACTIC ACID INCREASED [None]
  - COLITIS [None]
  - COUGH [None]
  - CREATININE RENAL CLEARANCE DECREASED [None]
  - CYTOLYTIC HEPATITIS [None]
  - DIALYSIS [None]
  - DIARRHOEA [None]
  - DISSEMINATED INTRAVASCULAR COAGULATION [None]
  - DYSPNOEA [None]
  - DYSPNOEA EXERTIONAL [None]
  - ENTEROCOLITIS INFECTIOUS [None]
  - GASTROINTESTINAL DISORDER [None]
  - LIPASE INCREASED [None]
  - METABOLIC ACIDOSIS [None]
  - MULTI-ORGAN FAILURE [None]
  - RENAL TUBULAR DISORDER [None]
  - RESPIRATORY ACIDOSIS [None]
  - TACHYCARDIA [None]
  - TOXOPLASMOSIS [None]
